FAERS Safety Report 8696122 (Version 2)
Quarter: 2013Q4

REPORT INFORMATION
  Report Type: Spontaneous
  Country: US (occurrence: US)
  Receive Date: 20120801
  Receipt Date: 20131107
  Transmission Date: 20140711
  Serious: Yes (Other)
  Sender: FDA-Public Use
  Company Number: US-009507513-1207USA009946

PATIENT
  Age: 66 Year
  Sex: Male

DRUGS (3)
  1. ZOCOR [Suspect]
     Route: 048
  2. AMLODIPINE [Suspect]
     Route: 048
  3. ASPIRIN [Concomitant]
     Route: 048

REACTIONS (4)
  - Feeling cold [Unknown]
  - Peripheral coldness [Unknown]
  - Nocturia [Unknown]
  - Chills [Unknown]
